FAERS Safety Report 24670673 (Version 1)
Quarter: 2024Q4

REPORT INFORMATION
  Report Type: Spontaneous
  Country: US (occurrence: None)
  Receive Date: 20241127
  Receipt Date: 20241127
  Transmission Date: 20250114
  Serious: Yes (Other)
  Sender: Public
  Company Number: None

PATIENT
  Age: 25 Year
  Sex: Male
  Weight: 78.8 kg

DRUGS (2)
  1. APRETUDE [Suspect]
     Active Substance: CABOTEGRAVIR
     Dosage: OTHER FREQUENCY : EVERY 2 MONTHS;?
     Route: 030
     Dates: start: 20240213, end: 20241123
  2. DESVENLAFAXINE [Suspect]
     Active Substance: DESVENLAFAXINE
     Dates: start: 20241112

REACTIONS (6)
  - Influenza like illness [None]
  - Blood creatine phosphokinase increased [None]
  - C-reactive protein increased [None]
  - Rhabdomyolysis [None]
  - Renal impairment [None]
  - Electrolyte imbalance [None]

NARRATIVE: CASE EVENT DATE: 20241120
